FAERS Safety Report 7011756-6 (Version None)
Quarter: 2010Q3

REPORT INFORMATION
  Report Type: 
  Country: None (occurrence: None)
  Receive Date: 20100923
  Receipt Date: 20090615
  Transmission Date: 20110219
  Serious: No
  Sender: FDA-Public Use
  Company Number: US-WYE-H09771109

PATIENT
  Sex: Female
  Weight: 77.18 kg

DRUGS (3)
  1. PREMARIN [Suspect]
     Indication: OESTROGEN REPLACEMENT THERAPY
     Route: 048
     Dates: start: 20090515
  2. PREMARIN [Suspect]
     Route: 048
     Dates: start: 19850101, end: 20090514
  3. DIAZEPAM [Concomitant]

REACTIONS (2)
  - JOINT SWELLING [None]
  - PAIN IN EXTREMITY [None]
